FAERS Safety Report 6388730-6 (Version None)
Quarter: 2009Q4

REPORT INFORMATION
  Report Type: 
  Country: None (occurrence: None)
  Receive Date: 20091001
  Receipt Date: 20090916
  Transmission Date: 20100525
  Serious: Yes (Life-Threatening, Hospitalization)
  Sender: FDA-Public Use
  Company Number: AUR-APL-2009-00397

PATIENT
  Age: 17 Year
  Sex: Female
  Weight: 53.968 kg

DRUGS (1)
  1. SERTRALINE HCL [Suspect]
     Indication: DEPRESSION
     Dosage: 50MG, DAILY, ORAL
     Route: 048
     Dates: start: 20090301

REACTIONS (5)
  - ARRHYTHMIA [None]
  - FATIGUE [None]
  - HYPOTENSION [None]
  - SINUS ARREST [None]
  - VIRAL INFECTION [None]
